FAERS Safety Report 8692762 (Version 4)
Quarter: 2013Q4

REPORT INFORMATION
  Report Type: Report from Study
  Country: JP (occurrence: JP)
  Receive Date: 20120730
  Receipt Date: 20131212
  Transmission Date: 20140711
  Serious: Yes (Hospitalization, Other)
  Sender: FDA-Public Use
  Company Number: JP-VERTEX PHARMACEUTICALS INC.-AE-2012-010912

PATIENT
  Age: 65 Year
  Sex: Male

DRUGS (6)
  1. VX-950 (TELAPREVIR) [Suspect]
     Indication: CHRONIC HEPATITIS C
     Dosage: 2250 MG, QD
     Route: 048
     Dates: start: 20120605, end: 20120608
  2. RIBAVIRIN [Suspect]
     Indication: CHRONIC HEPATITIS C
     Dosage: 600 MG, UNK
     Route: 048
     Dates: start: 20120605, end: 20120608
  3. PEGINTERFERON ALFA-2B [Suspect]
     Indication: CHRONIC HEPATITIS C
     Dosage: 1.5 ?G/KG, QW
     Route: 058
     Dates: start: 20120605, end: 20120605
  4. VOLTAREN [Concomitant]
     Dosage: 25 MG, PRN
     Route: 054
     Dates: start: 20120605
  5. ALLEGRA [Concomitant]
     Dosage: 120 MG, QD
     Route: 048
     Dates: start: 20120608, end: 20120623
  6. DIFLAL [Concomitant]
     Dosage: UNK UNK, PRN
     Route: 061
     Dates: start: 20120611, end: 20120623

REACTIONS (2)
  - Renal disorder [Not Recovered/Not Resolved]
  - Hyperuricaemia [Recovered/Resolved]
